FAERS Safety Report 13346359 (Version 1)
Quarter: 2017Q1

REPORT INFORMATION
  Report Type: Spontaneous
  Country: FR (occurrence: FR)
  Receive Date: 20170317
  Receipt Date: 20170317
  Transmission Date: 20170428
  Serious: Yes (Hospitalization)
  Sender: FDA-Public Use
  Company Number: FR-009507513-1703FRA005759

PATIENT
  Age: 76 Year
  Sex: Male

DRUGS (17)
  1. CERTICAN [Concomitant]
     Active Substance: EVEROLIMUS
  2. SOLUPRED [Concomitant]
     Active Substance: PREDNISOLONE
  3. CELLCEPT [Concomitant]
     Active Substance: MYCOPHENOLATE MOFETIL\MYCOPHENOLATE MOFETIL HYDROCHLORIDE
  4. ZYLORIC [Concomitant]
     Active Substance: ALLOPURINOL
  5. SILODYX [Concomitant]
     Active Substance: SILODOSIN
  6. EUPANTOL [Concomitant]
     Active Substance: PANTOPRAZOLE SODIUM
  7. APIDRA [Concomitant]
     Active Substance: INSULIN GLULISINE
  8. DETENSIEL [Concomitant]
     Active Substance: BISOPROLOL FUMARATE
  9. LASILIX [Concomitant]
     Active Substance: FUROSEMIDE
  10. ZANIDIP [Concomitant]
     Active Substance: LERCANIDIPINE HYDROCHLORIDE
  11. ARANESP [Concomitant]
     Active Substance: DARBEPOETIN ALFA
  12. HYPERIUM [Concomitant]
     Active Substance: RILMENIDINE PHOSPHATE
  13. INEGY [Suspect]
     Active Substance: EZETIMIBE\SIMVASTATIN
     Indication: DYSLIPIDAEMIA
     Dosage: 1 DF, QD
     Route: 048
     Dates: end: 20170224
  14. TOUJEO [Concomitant]
     Active Substance: INSULIN GLARGINE
  15. KARDEGIC [Suspect]
     Active Substance: ASPIRIN LYSINE
     Indication: VASCULAR DEVICE USER
     Dosage: 1 DF, QD
     Route: 048
     Dates: end: 20170224
  16. APROVEL [Concomitant]
     Active Substance: IRBESARTAN
  17. FUMAFER [Concomitant]
     Active Substance: FERROUS FUMARATE

REACTIONS (2)
  - Intracranial mass [Recovered/Resolved with Sequelae]
  - Cerebral haematoma [Recovered/Resolved with Sequelae]

NARRATIVE: CASE EVENT DATE: 20170224
